FAERS Safety Report 12705728 (Version 1)
Quarter: 2016Q3

REPORT INFORMATION
  Report Type: Report from Study
  Country: GB (occurrence: GB)
  Receive Date: 20160901
  Receipt Date: 20160901
  Transmission Date: 20161109
  Serious: Yes (Death, Other)
  Sender: FDA-Public Use
  Company Number: GB-ROCHE-1823963

PATIENT
  Age: 67 Year
  Sex: Male

DRUGS (7)
  1. ORAMORPH [Concomitant]
     Active Substance: MORPHINE SULFATE
  2. INSULIN [Concomitant]
     Active Substance: INSULIN NOS
  3. CODEINE [Concomitant]
     Active Substance: CODEINE
  4. GEMCITABINE HYDROCHLORIDE. [Suspect]
     Active Substance: GEMCITABINE HYDROCHLORIDE
     Indication: PANCREATIC CARCINOMA
     Route: 042
  5. SARGRAMOSTIM [Suspect]
     Active Substance: SARGRAMOSTIM
     Indication: PANCREATIC CARCINOMA
     Route: 065
  6. PARACETAMOL [Concomitant]
     Active Substance: ACETAMINOPHEN
  7. CAPECITABINE. [Suspect]
     Active Substance: CAPECITABINE
     Indication: PANCREATIC CARCINOMA
     Route: 048

REACTIONS (3)
  - Hypoglycaemia [Recovered/Resolved with Sequelae]
  - Pneumonia [Fatal]
  - Aspiration [Recovered/Resolved]

NARRATIVE: CASE EVENT DATE: 20110910
